FAERS Safety Report 9179320 (Version 1)
Quarter: 2013Q1

REPORT INFORMATION
  Report Type: Spontaneous
  Country: US (occurrence: US)
  Receive Date: 20130321
  Receipt Date: 20130321
  Transmission Date: 20140127
  Serious: Yes (Hospitalization)
  Sender: FDA-Public Use
  Company Number: US-FRI-1000043528

PATIENT
  Sex: Male

DRUGS (2)
  1. SAVELLA [Suspect]
     Indication: FIBROMYALGIA
     Dates: start: 201203
  2. SAVELLA [Suspect]
     Dosage: 50 MG
     Route: 048
     Dates: end: 201303

REACTIONS (2)
  - Muscle rigidity [Not Recovered/Not Resolved]
  - Mental status changes [Not Recovered/Not Resolved]
